FAERS Safety Report 8143284-9 (Version None)
Quarter: 2012Q1

REPORT INFORMATION
  Report Type: 
  Country: None (occurrence: None)
  Receive Date: 20120217
  Receipt Date: 20120210
  Transmission Date: 20120608
  Serious: Yes (Hospitalization)
  Sender: FDA-Public Use
  Company Number: US-BAYER-2011-034767

PATIENT
  Age: 25 Year
  Sex: Female
  Weight: 62.132 kg

DRUGS (4)
  1. KEPPRA [Concomitant]
     Indication: CONVULSION
  2. RITALIN [Concomitant]
     Indication: SOMNOLENCE
  3. YAZ [Suspect]
     Indication: CONTRACEPTION
     Dosage: UNK
     Dates: start: 20080101, end: 20080619
  4. FOLIC ACID [Concomitant]
     Indication: SOMNOLENCE

REACTIONS (9)
  - INJURY [None]
  - ANXIETY [None]
  - ANHEDONIA [None]
  - CEREBROVASCULAR ACCIDENT [None]
  - ABASIA [None]
  - PAIN [None]
  - DEPRESSION [None]
  - HEMIPARESIS [None]
  - AMNESIA [None]
